FAERS Safety Report 7402313-8 (Version None)
Quarter: 2011Q1

REPORT INFORMATION
  Report Type: 
  Country: None (occurrence: None)
  Receive Date: 20110331
  Receipt Date: 20110321
  Transmission Date: 20110831
  Serious: Yes (Hospitalization)
  Sender: FDA-Public Use
  Company Number: TRP_07607_2011

PATIENT
  Age: 55 Year
  Sex: Female
  Weight: 45.8 kg

DRUGS (2)
  1. RIBAVIRIN [Suspect]
     Indication: HEPATITIS C
     Dosage: (800 MG, DAILY ORAL)
     Route: 048
     Dates: start: 20061101, end: 20071101
  2. INTERFERON ALFA [Suspect]
     Indication: HEPATITIS C
     Dosage: (80 ?G 1X/WEEK SUBCUTANEOUS)
     Route: 058
     Dates: start: 20061101, end: 20071101

REACTIONS (4)
  - KETOSIS [None]
  - TYPE 1 DIABETES MELLITUS [None]
  - BASEDOW'S DISEASE [None]
  - DISEASE RECURRENCE [None]
